FAERS Safety Report 6604182-2 (Version None)
Quarter: 2010Q1

REPORT INFORMATION
  Report Type: 
  Country: None (occurrence: None)
  Receive Date: 20100226
  Receipt Date: 20090623
  Transmission Date: 20100710
  Serious: No
  Sender: FDA-Public Use
  Company Number: A0793293A

PATIENT
  Age: 32 Year
  Sex: Male

DRUGS (5)
  1. LAMICTAL CD [Suspect]
     Indication: DRUG USE FOR UNKNOWN INDICATION
     Dosage: 400MG UNKNOWN
     Route: 048
     Dates: end: 20090623
  2. ZYPREXA [Concomitant]
  3. RISPERDAL [Concomitant]
  4. RITALIN [Concomitant]
  5. ADDERALL 30 [Concomitant]

REACTIONS (1)
  - RASH ERYTHEMATOUS [None]
